FAERS Safety Report 9222899 (Version 4)
Quarter: 2013Q2

REPORT INFORMATION
  Report Type: Spontaneous
  Country: PL (occurrence: PL)
  Receive Date: 20130410
  Receipt Date: 20130627
  Transmission Date: 20140414
  Serious: Yes (Hospitalization, Other)
  Sender: FDA-Public Use
  Company Number: PL-ROCHE-1209308

PATIENT
  Age: 67 Year
  Sex: Female

DRUGS (4)
  1. ACTILYSE [Suspect]
     Indication: ISCHAEMIC STROKE
     Dosage: ADMINISTERED 10% OF A DOSE AS A BOLUS AND THEN IV OVER AN HOUR
     Route: 042
  2. NADROPARIN [Suspect]
     Indication: DEEP VEIN THROMBOSIS
     Dosage: 11400 U
     Route: 058
  3. CEFOTAXIME [Concomitant]
     Indication: DEEP VEIN THROMBOSIS
     Route: 042
  4. ENALAPRIL [Concomitant]

REACTIONS (6)
  - Deep vein thrombosis [Unknown]
  - Haemorrhagic diathesis [Unknown]
  - Haematoma [Recovered/Resolved]
  - Haematoma [Recovered/Resolved]
  - Contusion [Unknown]
  - Pyrexia [Unknown]
